FAERS Safety Report 23973035 (Version 1)
Quarter: 2024Q2

REPORT INFORMATION
  Report Type: Spontaneous
  Country: US (occurrence: None)
  Receive Date: 20240613
  Receipt Date: 20240613
  Transmission Date: 20240716
  Serious: Yes (Other)
  Sender: FDA-Public Use
  Company Number: US-MDD US Operations-MDD202307-002760

PATIENT
  Age: 79 Year
  Sex: Male

DRUGS (6)
  1. APOKYN [Suspect]
     Active Substance: APOMORPHINE HYDROCHLORIDE
     Indication: Parkinson^s disease
     Dates: start: 20230706
  2. APOKYN [Suspect]
     Active Substance: APOMORPHINE HYDROCHLORIDE
     Route: 058
     Dates: start: 20230705
  3. NEUPRO [Concomitant]
     Active Substance: ROTIGOTINE
     Dosage: NOT PROVIDED
  4. PROPRANOLOL HYDROCHLORIDE [Concomitant]
     Active Substance: PROPRANOLOL HYDROCHLORIDE
     Dosage: NOT PROVIDED
  5. LANTUS [Concomitant]
     Active Substance: INSULIN GLARGINE
     Indication: Diabetes mellitus
     Dosage: NOT PROVIDED
  6. OZEMPIC [Concomitant]
     Active Substance: SEMAGLUTIDE
     Dosage: NOT PROVIDED

REACTIONS (4)
  - Parkinson^s disease [Recovered/Resolved]
  - Sinus pain [Recovered/Resolved]
  - Somnolence [Recovered/Resolved]
  - Headache [Recovered/Resolved]

NARRATIVE: CASE EVENT DATE: 20230706
